FAERS Safety Report 26122730 (Version 1)
Quarter: 2025Q4

REPORT INFORMATION
  Report Type: Report from Study
  Country: PK (occurrence: PK)
  Receive Date: 20251204
  Receipt Date: 20251204
  Transmission Date: 20260117
  Serious: Yes (Death)
  Sender: ROCHE
  Company Number: PK-ROCHE-10000451136

PATIENT
  Age: 2 Year
  Sex: Female

DRUGS (1)
  1. RITUXIMAB [Suspect]
     Active Substance: RITUXIMAB
     Indication: Diffuse large B-cell lymphoma
     Dosage: 6 CYCLES WITH INTERVAL OF 3 WEEKLY.?PATIENT RECEIVED TOTAL 2 CYCLES TILL 17/9/2025.
     Route: 042
     Dates: start: 20250827, end: 20250917

REACTIONS (1)
  - Disease progression [Fatal]
